FAERS Safety Report 6826230-7 (Version None)
Quarter: 2010Q3

REPORT INFORMATION
  Report Type: 
  Country: None (occurrence: None)
  Receive Date: 20100709
  Receipt Date: 20100624
  Transmission Date: 20110219
  Serious: Yes (Other)
  Sender: FDA-Public Use
  Company Number: PHEH2008US03140

PATIENT
  Sex: Male

DRUGS (40)
  1. ZOMETA [Suspect]
     Dosage: UNK, UNK
     Dates: start: 20020101, end: 20030901
  2. MORPHINE SULFATE [Concomitant]
  3. LORAZEPAM [Concomitant]
  4. AZOPT [Concomitant]
  5. AMILORIDE HYDROCHLORIDE [Concomitant]
  6. MS CONTIN [Concomitant]
  7. ZOFRAN [Concomitant]
  8. FOLIC ACID [Concomitant]
  9. SANDOSTATIN LAR [Concomitant]
  10. CALCIUM WITH VITAMIN D [Concomitant]
  11. FORTICAL /KOR/ [Concomitant]
  12. RITALIN [Concomitant]
  13. CLARITIN [Concomitant]
  14. PEPCID AC [Concomitant]
  15. FLONASE [Concomitant]
  16. AMBIEN [Concomitant]
  17. ARANESP [Concomitant]
  18. COMPAZINE [Concomitant]
  19. MIACALCIN [Concomitant]
  20. FOLVITE [Concomitant]
  21. METHADONE [Concomitant]
  22. SANDOSTATIN [Concomitant]
  23. VITAMIN B-12 [Concomitant]
     Dosage: 1000 MG, QMO
  24. LOVENOX [Concomitant]
  25. QUADRAMET [Concomitant]
  26. CEPHALEXIN [Concomitant]
  27. INDOMETHACIN [Concomitant]
  28. PROCRIT                            /00909301/ [Concomitant]
  29. ZOLPIDEM [Concomitant]
  30. NORVASC [Concomitant]
  31. PRILOSEC [Concomitant]
  32. OXYCONTIN [Concomitant]
  33. LOMOTIL [Concomitant]
  34. NIACIN [Concomitant]
  35. ZOLOFT [Concomitant]
  36. QUESTRAN [Concomitant]
  37. EPOGEN [Concomitant]
  38. CHLORHEXIDINE [Concomitant]
  39. DEXAMETHASONE [Concomitant]
     Dosage: UNK
     Route: 061
  40. INFLUENZA VACCINE [Concomitant]
     Dosage: UNK
     Dates: start: 20051001

REACTIONS (56)
  - ANAEMIA [None]
  - ANAEMIA OF MALIGNANT DISEASE [None]
  - ANXIETY [None]
  - ARTHRALGIA [None]
  - ATELECTASIS [None]
  - BILIARY DILATATION [None]
  - BONE LESION [None]
  - BONE MARROW OEDEMA [None]
  - BONE PAIN [None]
  - CARCINOID SYNDROME [None]
  - CARCINOID TUMOUR OF THE SMALL BOWEL [None]
  - CELLULITIS [None]
  - CHOLELITHIASIS [None]
  - CHONDROCALCINOSIS PYROPHOSPHATE [None]
  - CHONDROMALACIA [None]
  - COLLAPSE OF LUNG [None]
  - EFFUSION [None]
  - EMOTIONAL DISTRESS [None]
  - ENTHESOPATHY [None]
  - FOOT FRACTURE [None]
  - GAIT DISTURBANCE [None]
  - GASTROOESOPHAGEAL REFLUX DISEASE [None]
  - HAEMATURIA [None]
  - HYPERBARIC OXYGEN THERAPY [None]
  - HYPERTENSION [None]
  - INFECTION [None]
  - INJURY [None]
  - INTESTINAL RESECTION [None]
  - LEUKOPENIA [None]
  - LUNG CONSOLIDATION [None]
  - LYMPHADENOPATHY [None]
  - MALNUTRITION [None]
  - MENTAL STATUS CHANGES [None]
  - METASTASES TO BONE [None]
  - METASTASES TO LIVER [None]
  - METASTASES TO SPINE [None]
  - METASTASES TO THORAX [None]
  - METASTATIC CARCINOID TUMOUR [None]
  - NEUTROPENIA [None]
  - OSTEONECROSIS OF JAW [None]
  - OSTEOPENIA [None]
  - OSTEOPOROSIS [None]
  - OSTEOSCLEROSIS [None]
  - PAIN [None]
  - PHYSICAL DISABILITY [None]
  - PLANTAR FASCIITIS [None]
  - PLEURAL EFFUSION [None]
  - PULMONARY GRANULOMA [None]
  - RENAL FAILURE [None]
  - SCAR [None]
  - SCOLIOSIS [None]
  - STRESS FRACTURE [None]
  - SUPERIOR VENA CAVAL OCCLUSION [None]
  - SYNOVIAL CYST [None]
  - TENDON DISORDER [None]
  - VENOUS OCCLUSION [None]
